FAERS Safety Report 25889473 (Version 1)
Quarter: 2025Q4

REPORT INFORMATION
  Report Type: Spontaneous
  Country: EU (occurrence: EU)
  Receive Date: 20251007
  Receipt Date: 20251007
  Transmission Date: 20260117
  Serious: Yes (Other)
  Sender: SANDOZ
  Company Number: EU-SYNOPTIS-069b-L-0003

PATIENT
  Age: 64 Year
  Sex: Male

DRUGS (11)
  1. INDAPAMIDE\TELMISARTAN [Concomitant]
     Active Substance: INDAPAMIDE\TELMISARTAN
     Indication: Hypertension
     Dosage: UNK, 80/2.5 MG
     Route: 065
  2. Tamsulosin sr [Concomitant]
     Indication: Benign prostatic hyperplasia
     Dosage: 0.4 MG
     Route: 065
  3. ATORVASTATIN\EZETIMIBE [Interacting]
     Active Substance: ATORVASTATIN\EZETIMIBE
     Indication: Dyslipidaemia
     Dosage: UNK, STRENGTH: 40/10 MG
     Route: 065
  4. ATORVASTATIN\EZETIMIBE [Interacting]
     Active Substance: ATORVASTATIN\EZETIMIBE
     Indication: Product used for unknown indication
  5. CLARITHROMYCIN [Interacting]
     Active Substance: CLARITHROMYCIN
     Dosage: 1000 MG, QD
     Route: 065
  6. CLARITHROMYCIN [Interacting]
     Active Substance: CLARITHROMYCIN
     Dosage: 500 MG TWICE DAILY (NUMBER OF UNITS IN THE INTERVAL 0.5 DEFINITION OF THE TIME INTERVAL DAY (D))
     Route: 048
  7. CLARITHROMYCIN [Interacting]
     Active Substance: CLARITHROMYCIN
     Indication: Bronchitis
     Dosage: 500 MG, BID
     Route: 065
  8. DIETARY SUPPLEMENT\HERBALS\MILK THISTLE [Interacting]
     Active Substance: MILK THISTLE
     Indication: Product used for unknown indication
     Dosage: 150 MG THREE TIMES DAILY (NUMBER OF UNITS IN THE INTERVAL 0.3 DEFINITION OF THE TIME INTERVAL DAY (D
     Route: 065
  9. DIETARY SUPPLEMENT\HERBALS\MILK THISTLE [Interacting]
     Active Substance: MILK THISTLE
     Dosage: 450 MG, QD (NUMBER OF UNITS IN THE INTERVAL 1 DEFINITION OF THE TIME INTERVAL DAY (D))
     Route: 065
  10. RIVAROXABAN [Interacting]
     Active Substance: RIVAROXABAN
     Indication: Deep vein thrombosis
     Dosage: 20 MG, QD
     Route: 065
  11. RIVAROXABAN [Interacting]
     Active Substance: RIVAROXABAN
     Indication: Product used for unknown indication
     Dosage: 20 MG
     Route: 065

REACTIONS (5)
  - Haematuria [Unknown]
  - Drug level increased [Unknown]
  - Anticoagulation drug level increased [Unknown]
  - Drug interaction [Unknown]
  - Drug interaction [Unknown]
